FAERS Safety Report 10210609 (Version 1)
Quarter: 2014Q2

REPORT INFORMATION
  Report Type: Report from Study
  Country: FI (occurrence: FI)
  Receive Date: 20140602
  Receipt Date: 20140602
  Transmission Date: 20141212
  Serious: Yes (Other)
  Sender: FDA-Public Use
  Company Number: FI-ASTELLAS-2014EU006361

PATIENT
  Sex: 0

DRUGS (1)
  1. TACROLIMUS [Suspect]
     Indication: CONJUNCTIVITIS
     Dosage: UNK, UNKNOWN FREQ.
     Route: 061

REACTIONS (2)
  - Herpes ophthalmic [Unknown]
  - Off label use [Unknown]
